FAERS Safety Report 18344443 (Version 1)
Quarter: 2020Q4

REPORT INFORMATION
  Report Type: Spontaneous
  Country: US (occurrence: US)
  Receive Date: 20201002
  Receipt Date: 20201002
  Transmission Date: 20210114
  Serious: Yes (Hospitalization)
  Sender: FDA-Public Use
  Company Number: None

PATIENT
  Age: 62 Year

DRUGS (1)
  1. ZARXIO [Suspect]
     Active Substance: FILGRASTIM-SNDZ
     Dosage: ?          OTHER DOSE:300MCG/0.5ML;?
     Route: 058
     Dates: start: 201912, end: 201912

REACTIONS (1)
  - Lymphoma [None]

NARRATIVE: CASE EVENT DATE: 20191219
